FAERS Safety Report 14915223 (Version 3)
Quarter: 2018Q3

REPORT INFORMATION
  Report Type: Spontaneous
  Country: US (occurrence: US)
  Receive Date: 20180518
  Receipt Date: 20180718
  Transmission Date: 20181010
  Serious: No
  Sender: FDA-Public Use
  Company Number: US-ALKERMES INC.-ALK-2018-002646

PATIENT
  Age: 51 Year
  Sex: Female
  Weight: 86.17 kg

DRUGS (1)
  1. ARISTADA [Suspect]
     Active Substance: ARIPIPRAZOLE LAUROXIL
     Indication: SCHIZOPHRENIA
     Dosage: 662 MG, QMO
     Route: 030

REACTIONS (3)
  - Dyskinesia [Not Recovered/Not Resolved]
  - Drug interaction [Not Recovered/Not Resolved]
  - Weight increased [Not Recovered/Not Resolved]
